FAERS Safety Report 10243094 (Version 1)
Quarter: 2014Q2

REPORT INFORMATION
  Report Type: Spontaneous
  Country: US (occurrence: None)
  Receive Date: 20140613
  Receipt Date: 20140613
  Transmission Date: 20141212
  Serious: Yes (Disabling, Other)
  Sender: FDA-Public Use
  Company Number: 2014-19717

PATIENT
  Age: 88 Year
  Sex: Female

DRUGS (2)
  1. EYLEA (ALFIBERCEPT) INJECTION [Suspect]
     Indication: MACULAR DEGENERATION
  2. PRED FORTE (PREDNISOLONE ACETATE) [Concomitant]

REACTIONS (3)
  - Blindness [None]
  - Eye infection [None]
  - Impaired driving ability [None]
